FAERS Safety Report 21073778 (Version 1)
Quarter: 2022Q3

REPORT INFORMATION
  Report Type: Spontaneous
  Country: US (occurrence: US)
  Receive Date: 20220713
  Receipt Date: 20220713
  Transmission Date: 20221027
  Serious: Yes (Other)
  Sender: FDA-Public Use
  Company Number: US-SA-SAC20220711000889

PATIENT
  Age: 45 Year
  Sex: Female

DRUGS (1)
  1. ZANTAC [Suspect]
     Active Substance: RANITIDINE HYDROCHLORIDE
     Indication: Gastrooesophageal reflux disease
     Dosage: 75 MG;QD
     Dates: start: 201401, end: 202001

REACTIONS (3)
  - Breast cancer stage II [Unknown]
  - Gastrointestinal carcinoma [Unknown]
  - Gastric cancer stage II [Unknown]

NARRATIVE: CASE EVENT DATE: 20170501
